FAERS Safety Report 9914204 (Version 1)
Quarter: 2014Q1

REPORT INFORMATION
  Report Type: Spontaneous
  Country: US (occurrence: US)
  Receive Date: 20140220
  Receipt Date: 20140220
  Transmission Date: 20141002
  Serious: Yes (Other)
  Sender: FDA-Public Use
  Company Number: US-AMGEN-USASP2014011024

PATIENT
  Age: 67 Year
  Sex: Female
  Weight: 49.89 kg

DRUGS (4)
  1. PROLIA [Suspect]
     Indication: OSTEOPOROSIS POSTMENOPAUSAL
     Dosage: UNK UNK, Q6MO
     Route: 065
     Dates: start: 201304
  2. BABY ASPIRIN [Concomitant]
  3. CALCIUM + VITAMIN D                /01483701/ [Concomitant]
     Dosage: UNK UNK, BID
  4. CALCIUM [Concomitant]

REACTIONS (13)
  - Loss of consciousness [Recovered/Resolved]
  - Ear discomfort [Unknown]
  - Joint crepitation [Unknown]
  - Malaise [Unknown]
  - Spinal pain [Not Recovered/Not Resolved]
  - Dizziness [Unknown]
  - Musculoskeletal stiffness [Unknown]
  - Neck pain [Not Recovered/Not Resolved]
  - Asthenia [Unknown]
  - Bone pain [Not Recovered/Not Resolved]
  - Back pain [Not Recovered/Not Resolved]
  - Musculoskeletal pain [Not Recovered/Not Resolved]
  - Pain in extremity [Not Recovered/Not Resolved]
